FAERS Safety Report 8957684 (Version 1)
Quarter: 2012Q4

REPORT INFORMATION
  Report Type: 
  Country: US (occurrence: US)
  Receive Date: 20121211
  Receipt Date: 20121211
  Transmission Date: 20130627
  Serious: No
  Sender: FDA-Public Use
  Company Number: US-009507513-1212USA003169

PATIENT
  Sex: Male

DRUGS (1)
  1. NASONEX [Suspect]
     Dosage: 2 Sprays in each nostril daily
     Route: 045

REACTIONS (3)
  - Underdose [Unknown]
  - Device malfunction [Unknown]
  - No adverse event [Unknown]
